FAERS Safety Report 14107396 (Version 1)
Quarter: 2017Q4

REPORT INFORMATION
  Report Type: Spontaneous
  Country: FR (occurrence: FR)
  Receive Date: 20171019
  Receipt Date: 20171019
  Transmission Date: 20180321
  Serious: Yes (Other)
  Sender: FDA-Public Use
  Company Number: FR-MERCK KGAA-2030705

PATIENT
  Age: 43 Year
  Sex: Female

DRUGS (1)
  1. NOVOTHYROX [Suspect]
     Active Substance: LEVOTHYROXINE SODIUM
     Indication: HYPOTHYROIDISM
     Route: 048
     Dates: start: 201704

REACTIONS (11)
  - Constipation [Recovered/Resolved]
  - Insomnia [Not Recovered/Not Resolved]
  - Fatigue [Not Recovered/Not Resolved]
  - Tinnitus [Not Recovered/Not Resolved]
  - Mood altered [Not Recovered/Not Resolved]
  - Acne [Not Recovered/Not Resolved]
  - Palpitations [Not Recovered/Not Resolved]
  - Hypertension [Not Recovered/Not Resolved]
  - Weight increased [Recovered/Resolved]
  - Blood thyroid stimulating hormone [Not Recovered/Not Resolved]
  - Weight decreased [Not Recovered/Not Resolved]

NARRATIVE: CASE EVENT DATE: 20170512
